FAERS Safety Report 20407490 (Version 1)
Quarter: 2022Q1

REPORT INFORMATION
  Report Type: Spontaneous
  Country: CN (occurrence: CN)
  Receive Date: 20220131
  Receipt Date: 20220131
  Transmission Date: 20220424
  Serious: Yes (Hospitalization, Other)
  Sender: FDA-Public Use
  Company Number: CN-PFIZER INC-202200123675

PATIENT
  Age: 22 Year
  Sex: Male
  Weight: 70 kg

DRUGS (5)
  1. CYTARABINE [Suspect]
     Active Substance: CYTARABINE
     Indication: Acute leukaemia
     Dosage: 0.1 G, 1X/DAY
     Route: 041
     Dates: start: 20211223, end: 20211229
  2. IDARUBICIN HYDROCHLORIDE [Suspect]
     Active Substance: IDARUBICIN HYDROCHLORIDE
     Indication: Acute leukaemia
     Dosage: 20 MG, 1X/DAY
     Route: 041
     Dates: start: 20211223, end: 20211225
  3. ALLOPURINOL [Concomitant]
     Active Substance: ALLOPURINOL
     Indication: Blood uric acid abnormal
     Dosage: 0.25 G, 1X/DAY
     Route: 048
     Dates: start: 20211223, end: 20220104
  4. HERBALS [Concomitant]
     Active Substance: HERBALS
     Indication: Immune enhancement therapy
     Dosage: 100 ML, 1X/DAY
     Route: 041
     Dates: start: 20211223, end: 20211229
  5. POTASSIUM CHLORIDE [Concomitant]
     Active Substance: POTASSIUM CHLORIDE
     Indication: Nutritional supplementation
     Dosage: 1 G, 2X/DAY
     Route: 048
     Dates: start: 20211224, end: 20211227

REACTIONS (5)
  - Agranulocytosis [Recovering/Resolving]
  - Pyrexia [Recovering/Resolving]
  - Chills [Recovering/Resolving]
  - Platelet count decreased [Unknown]
  - Condition aggravated [Unknown]

NARRATIVE: CASE EVENT DATE: 20211228
